FAERS Safety Report 12959626 (Version 1)
Quarter: 2016Q4

REPORT INFORMATION
  Report Type: Spontaneous
  Country: US (occurrence: US)
  Receive Date: 20161118
  Receipt Date: 20161118
  Transmission Date: 20170207
  Serious: Yes (Life-Threatening, Disabling, Other)
  Sender: FDA-Public Use
  Company Number: None

PATIENT
  Age: 34 Year
  Sex: Female
  Weight: 103.5 kg

DRUGS (2)
  1. MULTI GUMMIE WITH ZINC [Concomitant]
  2. MULTIHANCE [Suspect]
     Active Substance: GADOBENATE DIMEGLUMINE
     Indication: NUCLEAR MAGNETIC RESONANCE IMAGING
     Dosage: ?          OTHER FREQUENCY:1;?
     Route: 042
     Dates: start: 20160526, end: 20160526

REACTIONS (27)
  - Vein disorder [None]
  - Blindness unilateral [None]
  - Burning sensation [None]
  - Anaphylactic shock [None]
  - Amnesia [None]
  - Feeling abnormal [None]
  - Infusion site extravasation [None]
  - Musculoskeletal stiffness [None]
  - Balance disorder [None]
  - Joint stiffness [None]
  - Skin discolouration [None]
  - Pain in extremity [None]
  - Dyspepsia [None]
  - Headache [None]
  - Venous occlusion [None]
  - Pain in jaw [None]
  - Vitreous floaters [None]
  - Contrast media allergy [None]
  - Bone pain [None]
  - Arthralgia [None]
  - Eye pain [None]
  - Quality of life decreased [None]
  - Angioedema [None]
  - Mental impairment [None]
  - Skin tightness [None]
  - Paraesthesia [None]
  - Somatic symptom disorder [None]

NARRATIVE: CASE EVENT DATE: 20160526
